FAERS Safety Report 21354021 (Version 2)
Quarter: 2022Q4

REPORT INFORMATION
  Report Type: Spontaneous
  Country: GR (occurrence: GR)
  Receive Date: 20220920
  Receipt Date: 20221018
  Transmission Date: 20230112
  Serious: No
  Sender: FDA-Public Use
  Company Number: GR-PFIZER INC-PV202200041308

PATIENT
  Age: 6 Year
  Sex: Female
  Weight: 22 kg

DRUGS (1)
  1. GENOTROPIN [Suspect]
     Active Substance: SOMATROPIN
     Indication: Prader-Willi syndrome
     Dosage: 3.5 MG, WEEKLY (3.5 MG / 7 DAYS/ 5.3 MG)
     Route: 058
     Dates: start: 201706

REACTIONS (4)
  - Device use issue [Unknown]
  - Device mechanical issue [Unknown]
  - Device breakage [Unknown]
  - Poor quality device used [Unknown]
